FAERS Safety Report 4542310-3 (Version None)
Quarter: 2004Q4

REPORT INFORMATION
  Report Type: 
  Country: None (occurrence: None)
  Receive Date: 20041227
  Receipt Date: 20041221
  Transmission Date: 20050328
  Serious: Yes (Hospitalization, Disabling, Other)
  Sender: FDA-Public Use
  Company Number: 2003-09-2724

PATIENT
  Age: 44 Year
  Sex: Female
  Weight: 68.0396 kg

DRUGS (33)
  1. PEG-INTRON [Suspect]
     Indication: HEPATITIS C
     Dosage: 120 MU QWK SUBCUTANEOUS
     Route: 058
     Dates: start: 20011102, end: 20020312
  2. REBETOL [Suspect]
     Indication: HEPATITIS C
     Dosage: 1000 MG QD ORAL
     Route: 048
     Dates: start: 20011102, end: 20020312
  3. PROPRANOLOL [Concomitant]
  4. PHENERGAN [Concomitant]
  5. NEXIUM [Concomitant]
  6. TRAZODONE HCL [Concomitant]
  7. FOLIC ACID [Concomitant]
  8. LORAZEPAM [Concomitant]
  9. UNIVASC [Concomitant]
  10. TRAMADOL HCL [Concomitant]
  11. LORAZEPAM [Concomitant]
  12. PRILOSEC [Concomitant]
  13. ZOFRAN [Concomitant]
  14. ULTRAM [Concomitant]
  15. CELEXA [Concomitant]
  16. CYCLOBENZAPRINE [Concomitant]
  17. CLARITIN [Concomitant]
  18. XANAX [Concomitant]
  19. KLONOPIN [Concomitant]
  20. DARVOCET-N 100 [Concomitant]
  21. ZOLOFT [Concomitant]
  22. ASPIRIN [Concomitant]
  23. SOMA [Concomitant]
  24. FLEXERIL [Concomitant]
  25. RESTORIL [Concomitant]
  26. MORPHINE [Concomitant]
  27. METHADONE HCL [Concomitant]
  28. TOPOMAX (TOPIRAMATE) [Concomitant]
  29. PROTONIX [Concomitant]
  30. MILK THISTLE FRUIT [Concomitant]
  31. PEG-INTRON [Concomitant]
  32. NEURONTIN [Concomitant]
  33. DESYREL [Concomitant]

REACTIONS (82)
  - ABDOMINAL DISTENSION [None]
  - ACCIDENT [None]
  - ALOPECIA [None]
  - AMNESIA [None]
  - ANXIETY [None]
  - APLASTIC ANAEMIA [None]
  - ARTHRALGIA [None]
  - ARTHROPOD BITE [None]
  - ATAXIA [None]
  - BILE DUCT STENOSIS [None]
  - BILIARY DYSKINESIA [None]
  - BLOOD IMMUNOGLOBULIN G INCREASED [None]
  - CAROTID ARTERY STENOSIS [None]
  - CARPAL TUNNEL SYNDROME [None]
  - CATARACT [None]
  - CEREBRAL PERFUSION PRESSURE DECREASED [None]
  - CEREBROVASCULAR ACCIDENT [None]
  - CHEST PAIN [None]
  - CHOLECYSTITIS CHRONIC [None]
  - CHOLELITHIASIS [None]
  - CLONUS [None]
  - COGNITIVE DISORDER [None]
  - COLITIS [None]
  - CONSTIPATION [None]
  - CYTOGENETIC ANALYSIS ABNORMAL [None]
  - DEHYDRATION [None]
  - DEMYELINATION [None]
  - DEPRESSION [None]
  - DIZZINESS [None]
  - DRUG TOXICITY [None]
  - DYSPHONIA [None]
  - ELECTROCARDIOGRAM ST-T CHANGE [None]
  - ELECTROLYTE IMBALANCE [None]
  - ENCEPHALOPATHY [None]
  - FEELING HOT AND COLD [None]
  - GASTROENTERITIS [None]
  - GLAUCOMA [None]
  - HAEMANGIOMA OF LIVER [None]
  - HAEMATOCHEZIA [None]
  - HEPATIC NEOPLASM [None]
  - HEPATIC STEATOSIS [None]
  - HOFFMANN'S SIGN [None]
  - HYPERREFLEXIA [None]
  - HYPOKALAEMIA [None]
  - IMPAIRED WORK ABILITY [None]
  - INFLUENZA [None]
  - INSOMNIA [None]
  - INTERVERTEBRAL DISC DISORDER [None]
  - LIVER DISORDER [None]
  - MEMORY IMPAIRMENT [None]
  - MENINGITIS ASEPTIC [None]
  - MENINGITIS CHEMICAL [None]
  - MENTAL IMPAIRMENT [None]
  - METRORRHAGIA [None]
  - MITRAL VALVE DISEASE [None]
  - MULTIPLE SCLEROSIS [None]
  - MYALGIA [None]
  - MYOSITIS [None]
  - NERVOUSNESS [None]
  - OSTEOPENIA [None]
  - PAIN [None]
  - PAIN IN EXTREMITY [None]
  - PANCREATITIS CHRONIC [None]
  - PHOTOPHOBIA [None]
  - PNEUMONIA [None]
  - POLYNEUROPATHY [None]
  - PULMONARY MYCOSIS [None]
  - RADICULOPATHY [None]
  - RASH [None]
  - RENAL CYST [None]
  - RESTLESS LEGS SYNDROME [None]
  - RHEUMATOID ARTHRITIS [None]
  - SKIN LACERATION [None]
  - SPONDYLOSIS [None]
  - STRESS SYMPTOMS [None]
  - TRANSIENT ISCHAEMIC ATTACK [None]
  - TREMOR [None]
  - UPPER RESPIRATORY TRACT INFECTION [None]
  - VASCULAR OCCLUSION [None]
  - VASCULITIS [None]
  - WEIGHT DECREASED [None]
  - WEST NILE VIRAL INFECTION [None]
